FAERS Safety Report 5348939-7 (Version None)
Quarter: 2007Q2

REPORT INFORMATION
  Report Type: 
  Country: None (occurrence: None)
  Receive Date: 20070607
  Receipt Date: 20070529
  Transmission Date: 20071010
  Serious: Yes (Other)
  Sender: FDA-Public Use
  Company Number: US-JNJFOC-20070401139

PATIENT
  Sex: Male
  Weight: 102.47 kg

DRUGS (7)
  1. LEVAQUIN [Suspect]
     Indication: PHARYNGITIS
     Route: 048
     Dates: start: 20070212, end: 20070214
  2. LEVAQUIN [Suspect]
     Indication: SINUSITIS
     Route: 048
     Dates: start: 20070212, end: 20070214
  3. POMEGRANITE JUICE [Suspect]
     Indication: DRUG USE FOR UNKNOWN INDICATION
     Route: 065
  4. VITAMIN B COMPLEX CAP [Concomitant]
     Route: 065
  5. MAGNESIUM SULFATE [Concomitant]
     Route: 065
  6. CALCIUM CHLORIDE [Concomitant]
     Route: 065
  7. FLAXSEED [Concomitant]
     Route: 065

REACTIONS (10)
  - ARTHRALGIA [None]
  - ASTHENIA [None]
  - CARDIAC FLUTTER [None]
  - DIZZINESS [None]
  - DYSGEUSIA [None]
  - FLUSHING [None]
  - HALLUCINATION, AUDITORY [None]
  - PARAESTHESIA [None]
  - PARKINSON'S DISEASE [None]
  - THINKING ABNORMAL [None]
